FAERS Safety Report 10341798 (Version 3)
Quarter: 2014Q3

REPORT INFORMATION
  Report Type: Spontaneous
  Country: IT (occurrence: IT)
  Receive Date: 20140725
  Receipt Date: 20140801
  Transmission Date: 20150326
  Serious: Yes (Death, Other)
  Sender: FDA-Public Use
  Company Number: IT-ROCHE-1440427

PATIENT
  Age: 41 Year
  Sex: Female
  Weight: 73 kg

DRUGS (3)
  1. GABAPENTIN. [Concomitant]
     Active Substance: GABAPENTIN
     Indication: MUSCLE SPASMS
     Route: 048
  2. DELTACORTENE [Concomitant]
     Active Substance: PREDNISONE
     Indication: CERVICAL MYELOPATHY
     Route: 048
     Dates: start: 201401
  3. AVASTIN [Suspect]
     Active Substance: BEVACIZUMAB
     Indication: CERVICAL MYELOPATHY
     Route: 042
     Dates: start: 20140708, end: 20140708

REACTIONS (2)
  - Off label use [Unknown]
  - Acute respiratory failure [Fatal]

NARRATIVE: CASE EVENT DATE: 20140719
